FAERS Safety Report 14427619 (Version 1)
Quarter: 2018Q1

REPORT INFORMATION
  Report Type: Spontaneous
  Country: ES (occurrence: ES)
  Receive Date: 20180123
  Receipt Date: 20180123
  Transmission Date: 20180509
  Serious: Yes (Hospitalization, Other)
  Sender: FDA-Public Use
  Company Number: ES-ALLERGAN-1802995US

PATIENT
  Sex: Male
  Weight: 1.4 kg

DRUGS (3)
  1. INDOMETACIN [Suspect]
     Active Substance: INDOMETHACIN
     Indication: EXPOSURE DURING PREGNANCY
     Route: 064
  2. PROGESTERONE UNK [Suspect]
     Active Substance: PROGESTERONE
     Indication: EXPOSURE DURING PREGNANCY
     Route: 064
  3. ATOSIBAN [Suspect]
     Active Substance: ATOSIBAN
     Indication: EXPOSURE DURING PREGNANCY
     Route: 064

REACTIONS (2)
  - Foetal growth restriction [Unknown]
  - Premature baby [Unknown]
